FAERS Safety Report 8993644 (Version 1)
Quarter: 2013Q1

REPORT INFORMATION
  Report Type: Spontaneous
  Country: US (occurrence: US)
  Receive Date: 20130102
  Receipt Date: 20130102
  Transmission Date: 20140127
  Serious: No
  Sender: FDA-Public Use
  Company Number: US-AMGEN-USASP2012082903

PATIENT
  Age: 46 Year
  Sex: Female
  Weight: 79.82 kg

DRUGS (6)
  1. PREDNISONE [Concomitant]
     Indication: RHEUMATOID ARTHRITIS
     Dosage: 5 MG, BID
     Route: 048
  2. LORTAL [Concomitant]
     Indication: INTERVERTEBRAL DISC DEGENERATION
     Dosage: 7.5/50 UNK, PRN
     Route: 048
  3. ENBREL [Suspect]
     Indication: RHEUMATOID ARTHRITIS
     Dosage: 50 MG, WEEKLY
     Route: 058
     Dates: start: 20121211, end: 20121228
  4. MOBIC [Concomitant]
     Indication: RHEUMATOID ARTHRITIS
     Dosage: 15 UNK, QD
     Route: 048
  5. XANAX [Concomitant]
     Indication: ANXIETY
     Dosage: 0.15 MG, PRN
     Route: 048
  6. ALLEGRA [Concomitant]
     Indication: RHINITIS
     Dosage: 180 MG, QD
     Route: 048

REACTIONS (5)
  - Erythema [Not Recovered/Not Resolved]
  - Local swelling [Not Recovered/Not Resolved]
  - Pruritus [Not Recovered/Not Resolved]
  - Injection site reaction [Unknown]
  - Injection site erythema [Unknown]
